FAERS Safety Report 4839277-7 (Version None)
Quarter: 2005Q4

REPORT INFORMATION
  Report Type: 
  Country: None (occurrence: None)
  Receive Date: 20051129
  Receipt Date: 20041110
  Transmission Date: 20060501
  Serious: Yes (Other)
  Sender: FDA-Public Use
  Company Number: US-GLAXOSMITHKLINE-A0533455A

PATIENT
  Age: 16 Year
  Sex: Female

DRUGS (3)
  1. WELLBUTRIN [Suspect]
     Dosage: 150MG TWICE PER DAY
     Route: 048
     Dates: start: 20010101, end: 20030101
  2. RISPERDAL [Concomitant]
  3. LITHIUM [Concomitant]

REACTIONS (1)
  - DRUG INEFFECTIVE [None]
